FAERS Safety Report 4401457-2 (Version None)
Quarter: 2004Q3

REPORT INFORMATION
  Report Type: 
  Country: None (occurrence: None)
  Receive Date: 20040907
  Receipt Date: 20040511
  Transmission Date: 20050211
  Serious: No
  Sender: FDA-Public Use
  Company Number: US-BRISTOL-MYERS SQUIBB COMPANY-12584611

PATIENT
  Age: 52 Year
  Sex: Female
  Weight: 51 kg

DRUGS (9)
  1. COUMADIN [Suspect]
     Indication: MITRAL VALVE REPLACEMENT
     Dosage: CURRENTLY ON 7.5MG 5 X'S WEEKLY + 2.5MG 2 X'S WEEKLY (62.5MG TOTAL WEEKLY DOSE).
     Route: 048
  2. ATENOLOL [Concomitant]
  3. LEXAPRO [Concomitant]
  4. TRILEPTAL [Concomitant]
  5. NEURONTIN [Concomitant]
  6. LORAZEPAM [Concomitant]
  7. FOSAMAX [Concomitant]
  8. CALCIUM + VITAMIN D [Concomitant]
  9. MULTI-VITAMIN [Concomitant]

REACTIONS (1)
  - INTERNATIONAL NORMALISED RATIO DECREASED [None]
